FAERS Safety Report 8954900 (Version 1)
Quarter: 2012Q4

REPORT INFORMATION
  Report Type: Spontaneous
  Country: US (occurrence: None)
  Receive Date: 20121205
  Receipt Date: 20121205
  Transmission Date: 20130627
  Serious: No
  Sender: FDA-Public Use
  Company Number: None

PATIENT
  Age: 76 Year
  Sex: Female

DRUGS (2)
  1. XELODA [Suspect]
     Indication: PANCREATIC CANCER
     Route: 048
     Dates: start: 20121005, end: 201211
  2. XELODA [Suspect]
     Indication: PANCREATIC CANCER

REACTIONS (3)
  - Rash generalised [None]
  - Paronychia [None]
  - Fatigue [None]
